FAERS Safety Report 10191763 (Version 1)
Quarter: 2014Q2

REPORT INFORMATION
  Report Type: Spontaneous
  Country: US (occurrence: US)
  Receive Date: 20140523
  Receipt Date: 20140523
  Transmission Date: 20141212
  Serious: Yes (Other)
  Sender: FDA-Public Use
  Company Number: US-ACTAVIS-2014-10751

PATIENT
  Age: 21 Year
  Sex: Male

DRUGS (6)
  1. RISPERIDONE (WATSON LABORATORIES) [Suspect]
     Indication: AUTISM
     Dosage: 3 MG, DAILY
     Route: 065
     Dates: start: 2009
  2. RISPERIDONE (WATSON LABORATORIES) [Suspect]
     Dosage: 1.5 MG, QPM
     Route: 065
  3. RISPERIDONE (WATSON LABORATORIES) [Suspect]
     Dosage: 1 MG, QPM
     Route: 065
  4. RISPERIDONE (WATSON LABORATORIES) [Suspect]
     Dosage: 0.5 MG, UNKNOWN
     Route: 065
     Dates: end: 201207
  5. RISPERIDONE (WATSON LABORATORIES) [Suspect]
     Dosage: 6 MG, DAILY
     Route: 065
     Dates: start: 2002, end: 2009
  6. KETOCONAZOLE [Concomitant]
     Indication: OFF LABEL USE
     Dosage: UNK
     Route: 065
     Dates: end: 201208

REACTIONS (1)
  - Priapism [Recovered/Resolved]
